FAERS Safety Report 7075838-5 (Version None)
Quarter: 2010Q4

REPORT INFORMATION
  Report Type: 
  Country: None (occurrence: None)
  Receive Date: 20101101
  Receipt Date: 20101026
  Transmission Date: 20110411
  Serious: No
  Sender: FDA-Public Use
  Company Number: US-BIOGENIDEC-2010BI036193

PATIENT
  Age: 49 Year
  Sex: Female

DRUGS (3)
  1. TYSABRI [Suspect]
     Indication: MULTIPLE SCLEROSIS
     Route: 042
     Dates: start: 20050131
  2. TYSABRI [Suspect]
     Route: 042
     Dates: start: 20080109, end: 20091111
  3. TYSABRI [Suspect]
     Route: 042
     Dates: start: 20100511, end: 20100920

REACTIONS (1)
  - JC VIRUS TEST POSITIVE [None]
